FAERS Safety Report 10158121 (Version 1)
Quarter: 2014Q2

REPORT INFORMATION
  Report Type: Spontaneous
  Country: FR (occurrence: FR)
  Receive Date: 20140507
  Receipt Date: 20140507
  Transmission Date: 20141212
  Serious: Yes (Other)
  Sender: FDA-Public Use
  Company Number: FR-JNJFOC-20140416176

PATIENT
  Sex: Female
  Weight: 60 kg

DRUGS (4)
  1. DIPHENHYDRAMINE [Suspect]
     Indication: PRODUCT USED FOR UNKNOWN INDICATION
     Route: 065
  2. SERTRALINE [Interacting]
     Indication: ABNORMAL BEHAVIOUR
     Route: 065
  3. SERTRALINE [Interacting]
     Indication: MEMORY IMPAIRMENT
     Route: 065
  4. ACTIFED [Interacting]
     Indication: PRODUCT USED FOR UNKNOWN INDICATION
     Route: 065

REACTIONS (2)
  - Chemical submission [Unknown]
  - Drug interaction [Unknown]
